FAERS Safety Report 24368760 (Version 1)
Quarter: 2024Q3

REPORT INFORMATION
  Report Type: Report from Study
  Country: JO (occurrence: JO)
  Receive Date: 20240927
  Receipt Date: 20240927
  Transmission Date: 20241017
  Serious: Yes (Other)
  Sender: EMD SERONO INC
  Company Number: JO-Merck Healthcare KGaA-2024045185

PATIENT
  Age: 23 Year
  Sex: Female

DRUGS (1)
  1. REBIF [Suspect]
     Active Substance: INTERFERON BETA-1A
     Indication: Multiple sclerosis
     Route: 058
     Dates: start: 20240104

REACTIONS (3)
  - Foetal heart rate abnormal [Unknown]
  - Abortion [Recovered/Resolved]
  - Maternal exposure during pregnancy [Recovered/Resolved]

NARRATIVE: CASE EVENT DATE: 20240731
